FAERS Safety Report 8967787 (Version 1)
Quarter: 2012Q4

REPORT INFORMATION
  Report Type: 
  Country: BR (occurrence: BR)
  Receive Date: 20121217
  Receipt Date: 20121217
  Transmission Date: 20130627
  Serious: Yes (Other)
  Sender: FDA-Public Use
  Company Number: BR-NOVOPROD-365929

PATIENT
  Age: 65 Year
  Sex: Female

DRUGS (2)
  1. VICTOZA [Suspect]
     Indication: TYPE 2 DIABETES MELLITUS
     Dosage: 0.6 mg
     Route: 058
     Dates: start: 201209
  2. VICTOZA [Suspect]
     Indication: OBESITY
     Dosage: 1.2 mg
     Route: 058
     Dates: start: 20120929, end: 20121113

REACTIONS (1)
  - Metastatic neoplasm [Unknown]
